FAERS Safety Report 11776802 (Version 1)
Quarter: 2015Q4

REPORT INFORMATION
  Report Type: Spontaneous
  Country: US (occurrence: US)
  Receive Date: 20151125
  Receipt Date: 20151125
  Transmission Date: 20160304
  Serious: No
  Sender: FDA-Public Use
  Company Number: US-TEVA-592554USA

PATIENT
  Sex: Male

DRUGS (1)
  1. BUDESONIDE. [Suspect]
     Active Substance: BUDESONIDE
     Indication: LUNG DISORDER
     Dosage: .5 MILLIGRAM DAILY;
     Route: 065
     Dates: start: 201407

REACTIONS (2)
  - Vision blurred [Unknown]
  - Abdominal discomfort [Unknown]
